FAERS Safety Report 6928888-0 (Version None)
Quarter: 2010Q3

REPORT INFORMATION
  Report Type: 
  Country: None (occurrence: None)
  Receive Date: 20100817
  Receipt Date: 20100812
  Transmission Date: 20110219
  Serious: Yes (Other)
  Sender: FDA-Public Use
  Company Number: ES-ROXANE LABORATORIES, INC.-2010-DE-04411GD

PATIENT

DRUGS (1)
  1. CODEINE [Suspect]

REACTIONS (1)
  - ANAPHYLACTIC REACTION [None]
